FAERS Safety Report 8508319-X (Version None)
Quarter: 2012Q3

REPORT INFORMATION
  Report Type: 
  Country: None (occurrence: None)
  Receive Date: 20120713
  Receipt Date: 20120704
  Transmission Date: 20120928
  Serious: Yes (Hospitalization)
  Sender: FDA-Public Use
  Company Number: CA-JNJFOC-20120701806

PATIENT
  Sex: Female
  Weight: 61.5 kg

DRUGS (15)
  1. ZOPICLONE [Concomitant]
     Route: 065
  2. VITAMIN D [Concomitant]
     Route: 065
  3. APO-FOLIC [Concomitant]
     Route: 065
  4. FLUTICASONE FUROATE [Concomitant]
     Route: 065
  5. NOVA [Concomitant]
     Route: 065
  6. NEXIUM [Concomitant]
     Route: 065
  7. STRESSTAB [Concomitant]
     Route: 065
  8. SODIUM CHLORIDE [Concomitant]
     Route: 065
  9. ATACAND [Concomitant]
     Route: 065
  10. DESLORATADINE [Concomitant]
     Route: 065
  11. REMICADE [Suspect]
     Indication: PSORIATIC ARTHROPATHY
     Route: 042
     Dates: start: 20110622
  12. CALCIUM CITRATE WITH VITAMIN D [Concomitant]
     Route: 066
  13. SULCRATE [Concomitant]
     Route: 065
  14. ALL OTHER THERAPEUTICS [Concomitant]
     Route: 065
  15. METHOTREXATE [Concomitant]
     Dosage: ONCE EVERY MONDAY
     Route: 065

REACTIONS (3)
  - DIZZINESS [None]
  - BLOOD SODIUM DECREASED [None]
  - HEADACHE [None]
